FAERS Safety Report 16658977 (Version 1)
Quarter: 2019Q3

REPORT INFORMATION
  Report Type: Spontaneous
  Country: US (occurrence: US)
  Receive Date: 20190801
  Receipt Date: 20190801
  Transmission Date: 20191004
  Serious: No
  Sender: FDA-Public Use
  Company Number: US-ASTRAZENECA-2019SF06986

PATIENT
  Age: 19614 Day
  Sex: Male

DRUGS (13)
  1. GLUCOPHAGE [Concomitant]
     Active Substance: METFORMIN HYDROCHLORIDE
  2. MUSINEX [Concomitant]
  3. LIPITOR [Concomitant]
     Active Substance: ATORVASTATIN CALCIUM
  4. NASONEX [Concomitant]
     Active Substance: MOMETASONE FUROATE
  5. HYGROTON [Concomitant]
     Active Substance: CHLORTHALIDONE
  6. BREO ELLIPTA [Concomitant]
     Active Substance: FLUTICASONE FUROATE\VILANTEROL TRIFENATATE
  7. SPIRIVA [Concomitant]
     Active Substance: TIOTROPIUM BROMIDE MONOHYDRATE
  8. FASENRA [Suspect]
     Active Substance: BENRALIZUMAB
     Indication: ASTHMA
     Dosage: 30.0MG UNKNOWN
     Route: 058
     Dates: start: 20190419
  9. ALBUTEROL. [Concomitant]
     Active Substance: ALBUTEROL
  10. FASENRA [Suspect]
     Active Substance: BENRALIZUMAB
     Indication: ASTHMA
     Dosage: 30.0MG UNKNOWN
     Route: 058
     Dates: start: 20190517
  11. PREVACID [Concomitant]
     Active Substance: LANSOPRAZOLE
  12. FASENRA [Suspect]
     Active Substance: BENRALIZUMAB
     Indication: ASTHMA
     Dosage: 30.0MG UNKNOWN
     Route: 058
     Dates: start: 20190315
  13. LISINOPRIL. [Suspect]
     Active Substance: LISINOPRIL
     Route: 048

REACTIONS (6)
  - Hypercholesterolaemia [Not Recovered/Not Resolved]
  - Dyspnoea [Unknown]
  - Type 2 diabetes mellitus [Not Recovered/Not Resolved]
  - Essential hypertension [Not Recovered/Not Resolved]
  - Overweight [Not Recovered/Not Resolved]
  - Diastolic dysfunction [Not Recovered/Not Resolved]

NARRATIVE: CASE EVENT DATE: 20190315
